FAERS Safety Report 8822851 (Version 2)
Quarter: 2015Q3

REPORT INFORMATION
  Report Type: Report from Study
  Country: US (occurrence: US)
  Receive Date: 20121003
  Receipt Date: 20150701
  Transmission Date: 20151125
  Serious: Yes (Death)
  Sender: FDA-Public Use
  Company Number: US-ROCHE-1130780

PATIENT
  Sex: Male

DRUGS (31)
  1. RITUXAN [Suspect]
     Active Substance: RITUXIMAB
     Indication: ACUTE LYMPHOCYTIC LEUKAEMIA
     Route: 042
     Dates: start: 20051014
  2. DEMEROL [Concomitant]
     Active Substance: MEPERIDINE HYDROCHLORIDE
     Route: 042
  3. PREVACID [Concomitant]
     Active Substance: LANSOPRAZOLE
     Route: 048
  4. PROZAC [Concomitant]
     Active Substance: FLUOXETINE HYDROCHLORIDE
     Route: 048
  5. PROZAC [Concomitant]
     Active Substance: FLUOXETINE HYDROCHLORIDE
     Route: 048
  6. ZETIA [Concomitant]
     Active Substance: EZETIMIBE
     Route: 065
  7. ACYCLOVIR. [Concomitant]
     Active Substance: ACYCLOVIR
  8. BENADRYL [Concomitant]
     Active Substance: DIPHENHYDRAMINE HYDROCHLORIDE
     Route: 065
  9. ATROPINE. [Concomitant]
     Active Substance: ATROPINE
     Dosage: 1-2 MG
     Route: 042
  10. PRILOSEC [Concomitant]
     Active Substance: OMEPRAZOLE MAGNESIUM
  11. ASPIRIN. [Concomitant]
     Active Substance: ASPIRIN
     Route: 048
  12. CYTOXAN [Concomitant]
     Active Substance: CYCLOPHOSPHAMIDE
     Route: 042
  13. OXYCODONE [Concomitant]
     Active Substance: OXYCODONE
     Dosage: 5-10 MG
     Route: 048
  14. TYLENOL [Concomitant]
     Active Substance: ACETAMINOPHEN
     Route: 048
  15. CEFEPIME [Concomitant]
     Active Substance: CEFEPIME HYDROCHLORIDE
     Route: 042
  16. MESNA. [Concomitant]
     Active Substance: MESNA
     Route: 042
  17. AMBIEN [Concomitant]
     Active Substance: ZOLPIDEM TARTRATE
     Route: 048
  18. FLUCONAZOLE. [Concomitant]
     Active Substance: FLUCONAZOLE
  19. ATENOLOL. [Concomitant]
     Active Substance: ATENOLOL
     Route: 048
  20. DEXAMETHASONE. [Concomitant]
     Active Substance: DEXAMETHASONE
     Route: 048
  21. VINCRISTINE [Concomitant]
     Active Substance: VINCRISTINE
     Route: 042
  22. L-ASPARAGINASE [Concomitant]
     Active Substance: ASPARAGINASE
     Dosage: 12800 UNITS
     Route: 058
  23. GRANISETRON [Concomitant]
     Active Substance: GRANISETRON
     Route: 065
  24. LASIX [Concomitant]
     Active Substance: FUROSEMIDE
     Route: 042
  25. BICARBONATE [Concomitant]
     Active Substance: BICARBONATE ION
     Route: 048
  26. SOLU-MEDROL [Concomitant]
     Active Substance: METHYLPREDNISOLONE SODIUM SUCCINATE
     Route: 065
  27. DIFLUCAN [Concomitant]
     Active Substance: FLUCONAZOLE
     Route: 048
  28. ALLOPURINOL. [Concomitant]
     Active Substance: ALLOPURINOL
     Route: 048
  29. DAUNORUBICIN [Concomitant]
     Active Substance: DAUNORUBICIN
     Route: 042
  30. ATIVAN [Concomitant]
     Active Substance: LORAZEPAM
     Route: 048
  31. VANCOMYCIN [Concomitant]
     Active Substance: VANCOMYCIN
     Route: 042

REACTIONS (10)
  - Death [Fatal]
  - Rales [Unknown]
  - Respiratory distress [Unknown]
  - Inflammation [Unknown]
  - Chest pain [Unknown]
  - Malaise [Unknown]
  - Erythema [Unknown]
  - Tachypnoea [Unknown]
  - Sinus tachycardia [Unknown]
  - Oedema peripheral [Unknown]
